FAERS Safety Report 19642994 (Version 1)
Quarter: 2021Q3

REPORT INFORMATION
  Report Type: Spontaneous
  Country: FR (occurrence: FR)
  Receive Date: 20210731
  Receipt Date: 20210731
  Transmission Date: 20211014
  Serious: Yes (Hospitalization)
  Sender: FDA-Public Use
  Company Number: NVSC2021FR167606

PATIENT
  Age: 63 Year
  Sex: Male
  Weight: 70 kg

DRUGS (8)
  1. ACIDE CLAVULANIQUE [Suspect]
     Active Substance: CLAVULANIC ACID
     Indication: PNEUMONIA ASPIRATION
     Dosage: UNK
     Route: 065
     Dates: start: 20210531, end: 20210602
  2. AMOXICILLINE [Suspect]
     Active Substance: AMOXICILLIN
     Indication: PNEUMONIA ASPIRATION
     Dosage: UNK
     Route: 065
     Dates: start: 20210531, end: 20210602
  3. XENETIC 350 [Suspect]
     Active Substance: IOBITRIDOL
     Indication: COMPUTERISED TOMOGRAM
     Dosage: 100 ML (TOTAL)
     Route: 042
     Dates: start: 20210608, end: 20210608
  4. METRONIDAZOLE. [Suspect]
     Active Substance: METRONIDAZOLE
     Indication: PNEUMONIA ASPIRATION
     Dosage: UNK
     Route: 065
     Dates: start: 20210602, end: 20210608
  5. CEFOTAXIME [Suspect]
     Active Substance: CEFOTAXIME SODIUM
     Indication: PNEUMONIA ASPIRATION
     Dosage: UNK
     Route: 065
     Dates: start: 20210602, end: 20210608
  6. AMIKACINE [Suspect]
     Active Substance: AMIKACIN
     Indication: PNEUMONIA ASPIRATION
     Dosage: UNK
     Route: 065
     Dates: start: 20210602, end: 20210608
  7. MIDAZOLAM. [Concomitant]
     Active Substance: MIDAZOLAM
     Indication: SEDATION
     Dosage: UNK
     Route: 065
     Dates: start: 20210529, end: 20210615
  8. SUFENTANIL [Concomitant]
     Active Substance: SUFENTANIL
     Indication: SEDATION
     Dosage: UNK
     Route: 065
     Dates: start: 20210529, end: 20210616

REACTIONS (1)
  - Dermatitis bullous [Recovered/Resolved]

NARRATIVE: CASE EVENT DATE: 20210605
